FAERS Safety Report 15669828 (Version 1)
Quarter: 2018Q4

REPORT INFORMATION
  Report Type: Spontaneous
  Country: US (occurrence: US)
  Receive Date: 20181129
  Receipt Date: 20181129
  Transmission Date: 20190205
  Serious: Yes (Hospitalization)
  Sender: FDA-Public Use
  Company Number: US-TEVA-2018-US-980518

PATIENT
  Age: 25 Year
  Sex: Male

DRUGS (1)
  1. ENOXAPARIN [Suspect]
     Active Substance: ENOXAPARIN
     Indication: INTENTIONAL OVERDOSE
     Dosage: 31 VIALS OF 80MG OF ENOXAPARIN
     Route: 065

REACTIONS (9)
  - Compartment syndrome [Unknown]
  - Injection site haemorrhage [Unknown]
  - Haemoglobin decreased [Unknown]
  - Coagulation test abnormal [Recovering/Resolving]
  - Subcutaneous haematoma [Unknown]
  - Intentional overdose [Unknown]
  - Tachycardia [Unknown]
  - Activated partial thromboplastin time prolonged [Recovering/Resolving]
  - Injection site haematoma [Unknown]
